FAERS Safety Report 7387196-7 (Version None)
Quarter: 2011Q1

REPORT INFORMATION
  Report Type: 
  Country: None (occurrence: None)
  Receive Date: 20110331
  Receipt Date: 20110325
  Transmission Date: 20110831
  Serious: Yes (Other)
  Sender: FDA-Public Use
  Company Number: B0709014A

PATIENT
  Sex: Male

DRUGS (2)
  1. FLUTIDE [Suspect]
     Route: 055
  2. SULTANOL [Suspect]
     Route: 055

REACTIONS (2)
  - ABDOMINAL PAIN UPPER [None]
  - GASTRIC ULCER [None]
